FAERS Safety Report 9305872 (Version 1)
Quarter: 2013Q2

REPORT INFORMATION
  Report Type: Spontaneous
  Country: US (occurrence: None)
  Receive Date: 20130520
  Receipt Date: 20130520
  Transmission Date: 20140414
  Serious: Yes (Hospitalization)
  Sender: FDA-Public Use
  Company Number: 2013-001493

PATIENT
  Age: 69 Year
  Sex: Female

DRUGS (6)
  1. ASACOL [Suspect]
     Indication: COLITIS MICROSCOPIC
     Route: 048
  2. TIAZAC /00489702/ (DILTIAZEM HYDROCHLORIDE) [Concomitant]
  3. LOTENSIN?/00909102/ (BENAZEPRIL HYDROCHLORIDE) [Concomitant]
  4. HYDROCHLOROTHIAZIDE (HYDROCHLOROTHIAZIDE) [Concomitant]
  5. TOPROL (METOPROLOL SUCCINATE) [Concomitant]
  6. EVISTA (RALOXIFENE HYDROCHLORIDE) [Concomitant]

REACTIONS (8)
  - Kidney infection [None]
  - Clostridium difficile colitis [None]
  - Nephrolithiasis [None]
  - Vomiting [None]
  - Hyponatraemia [None]
  - Hypokalaemia [None]
  - Pyrexia [None]
  - Diarrhoea [None]
